FAERS Safety Report 5416294-X (Version None)
Quarter: 2007Q3

REPORT INFORMATION
  Report Type: 
  Country: None (occurrence: None)
  Receive Date: 20070718
  Receipt Date: 20070302
  Transmission Date: 20080115
  Serious: Yes (Other)
  Sender: FDA-Public Use
  Company Number: 2007016664

PATIENT

DRUGS (2)
  1. CELEBREX [Suspect]
     Indication: OSTEOARTHRITIS
     Dosage: (200 MG)
  2. PLAVIX [Suspect]

REACTIONS (1)
  - GASTROINTESTINAL HAEMORRHAGE [None]
